FAERS Safety Report 12720133 (Version 1)
Quarter: 2016Q3

REPORT INFORMATION
  Report Type: Spontaneous
  Country: US (occurrence: US)
  Receive Date: 20160902
  Receipt Date: 20160902
  Transmission Date: 20161109
  Serious: Yes (Other)
  Sender: FDA-Public Use
  Company Number: None

PATIENT
  Age: 67 Year
  Sex: Male
  Weight: 111.4 kg

DRUGS (1)
  1. TBO-FILOGRASTIM [Suspect]
     Active Substance: FILGRASTIM
     Indication: SURGERY
     Route: 058
     Dates: start: 20160623

REACTIONS (4)
  - Mobility decreased [None]
  - Hyperhidrosis [None]
  - Toxicity to various agents [None]
  - Hypotension [None]

NARRATIVE: CASE EVENT DATE: 20160623
